FAERS Safety Report 6574332-5 (Version None)
Quarter: 2010Q1

REPORT INFORMATION
  Report Type: 
  Country: None (occurrence: None)
  Receive Date: 20100201
  Receipt Date: 20100118
  Transmission Date: 20100710
  Serious: Yes (Hospitalization, Other)
  Sender: FDA-Public Use
  Company Number: MOZO-1000301

PATIENT
  Age: 62 Year
  Sex: Male

DRUGS (7)
  1. MOZOBIL [Suspect]
     Indication: HAEMATOPOIETIC STEM CELL MOBILISATION
     Dosage: 240 MG/KG, QD, SUBCUTANEOUS
     Route: 058
     Dates: start: 20091221, end: 20091222
  2. MOZOBIL [Suspect]
     Indication: MULTIPLE MYELOMA
     Dosage: 240 MG/KG, QD, SUBCUTANEOUS
     Route: 058
     Dates: start: 20091221, end: 20091222
  3. LISINOPRIL [Concomitant]
  4. BENDROFLUAZIDE (BENDROFLUMETHIAZIDE) [Concomitant]
  5. ATENOLOL [Concomitant]
  6. OXYCONTIN [Concomitant]
  7. OXYNORM (OXYCODONE HYDROCHLORIE) [Concomitant]

REACTIONS (4)
  - ANGINA PECTORIS [None]
  - BLOOD VISCOSITY INCREASED [None]
  - LEUKOCYTOSIS [None]
  - MYOCARDIAL INFARCTION [None]
